FAERS Safety Report 11972155 (Version 1)
Quarter: 2016Q1

REPORT INFORMATION
  Report Type: Spontaneous
  Country: FR (occurrence: FR)
  Receive Date: 20160128
  Receipt Date: 20160128
  Transmission Date: 20160526
  Serious: Yes (Hospitalization)
  Sender: FDA-Public Use
  Company Number: PHHY2016FR009925

PATIENT
  Age: 16 Year
  Sex: Female
  Weight: 49.5 kg

DRUGS (6)
  1. ETOPOSIDE TEVA [Suspect]
     Active Substance: ETOPOSIDE
     Indication: HODGKIN^S DISEASE
     Dosage: 1800 MG, UNK
     Route: 042
     Dates: start: 20150904
  2. ZOPHREN [Suspect]
     Active Substance: ONDANSETRON
     Indication: VOMITING
     Dosage: 161.7 MG, UNK
     Route: 042
     Dates: start: 20150904
  3. CORTANCYL [Suspect]
     Active Substance: PREDNISONE
     Indication: HODGKIN^S DISEASE
     Dosage: 60 MG/M2, QD (DAILY IN 3 TIMES)
     Route: 048
     Dates: start: 20150904, end: 20150919
  4. ONCOVIN [Suspect]
     Active Substance: VINCRISTINE SULFATE
     Indication: HODGKIN^S DISEASE
     Dosage: 20 MG, UNK
     Route: 042
     Dates: start: 20150904
  5. ADRIAMYCIN [Suspect]
     Active Substance: DOXORUBICIN HYDROCHLORIDE
     Indication: HODGKIN^S DISEASE
     Dosage: 236 MG, UNK
     Route: 042
     Dates: start: 20150904
  6. ZOPHREN [Suspect]
     Active Substance: ONDANSETRON
     Indication: VOMITING
     Dosage: 147 MG, UNK
     Route: 048
     Dates: start: 20150904

REACTIONS (4)
  - Vomiting [Recovered/Resolved]
  - Abdominal pain [Recovered/Resolved]
  - Diarrhoea [Recovered/Resolved]
  - Febrile bone marrow aplasia [Recovered/Resolved]

NARRATIVE: CASE EVENT DATE: 20150911
